FAERS Safety Report 7445607-2 (Version None)
Quarter: 2011Q2

REPORT INFORMATION
  Report Type: 
  Country: None (occurrence: None)
  Receive Date: 20110429
  Receipt Date: 20110427
  Transmission Date: 20111010
  Serious: Yes (Hospitalization)
  Sender: FDA-Public Use
  Company Number: GB-ROCHE-772589

PATIENT
  Age: 48 Year
  Sex: Male

DRUGS (6)
  1. ANTI-THYMOCYTE GLOBULIN NOS [Suspect]
     Route: 065
  2. METHYLPREDNISOLONE [Suspect]
     Route: 065
  3. CELLCEPT [Suspect]
     Route: 065
  4. CYCLOSPORINE [Suspect]
     Route: 065
  5. PREDNISOLONE [Suspect]
     Route: 065
  6. PREDNISOLONE [Suspect]
     Route: 065

REACTIONS (6)
  - AORTIC DISSECTION [None]
  - BLOOD PRESSURE INCREASED [None]
  - CYTOMEGALOVIRUS INFECTION [None]
  - CHEST PAIN [None]
  - ABDOMINAL TENDERNESS [None]
  - HEART RATE INCREASED [None]
